FAERS Safety Report 18289149 (Version 1)
Quarter: 2020Q3

REPORT INFORMATION
  Report Type: Spontaneous
  Country: US (occurrence: US)
  Receive Date: 20200921
  Receipt Date: 20200921
  Transmission Date: 20201103
  Serious: No
  Sender: FDA-Public Use
  Company Number: None

PATIENT
  Age: 77 Year
  Sex: Male
  Weight: 98.55 kg

DRUGS (11)
  1. DEPAKOTE 500MG [Concomitant]
  2. METAMUCIL [Concomitant]
     Active Substance: PLANTAGO SEED
  3. MEKTOVI [Suspect]
     Active Substance: BINIMETINIB
     Indication: NEOPLASM MALIGNANT
     Route: 048
     Dates: start: 20190814, end: 20200921
  4. AMITRIPTYLINE 50MG [Concomitant]
     Active Substance: AMITRIPTYLINE
  5. ATENOLOL 25MG [Concomitant]
     Active Substance: ATENOLOL
  6. MULTIVITAMIN [Concomitant]
     Active Substance: VITAMINS
  7. TAMSULOSIN 0.4MG [Concomitant]
     Active Substance: TAMSULOSIN
  8. CLONAZEPAM 0.5MG [Concomitant]
     Active Substance: CLONAZEPAM
  9. BRAFTOVI [Suspect]
     Active Substance: ENCORAFENIB
     Indication: NEOPLASM MALIGNANT
     Route: 048
     Dates: start: 20190814, end: 20200921
  10. LORATADINE 10MG [Concomitant]
     Active Substance: LORATADINE
  11. FINASTERIDE 5MG [Concomitant]
     Active Substance: FINASTERIDE

REACTIONS (1)
  - Disease progression [None]

NARRATIVE: CASE EVENT DATE: 20200921
